FAERS Safety Report 15603408 (Version 4)
Quarter: 2019Q1

REPORT INFORMATION
  Report Type: Report from Study
  Country: US (occurrence: US)
  Receive Date: 20181109
  Receipt Date: 20190123
  Transmission Date: 20190417
  Serious: Yes (Hospitalization)
  Sender: FDA-Public Use
  Company Number: US-ACTELION-A-US2016-136488

PATIENT
  Age: 79 Year
  Sex: Female
  Weight: 57.6 kg

DRUGS (6)
  1. ADEMPAS [Suspect]
     Active Substance: RIOCIGUAT
     Indication: PRODUCT USED FOR UNKNOWN INDICATION
     Dosage: 1.5 MG, UNK
     Route: 048
  2. TYVASO [Concomitant]
     Active Substance: TREPROSTINIL
     Indication: PRODUCT USED FOR UNKNOWN INDICATION
  3. OPSUMIT [Suspect]
     Active Substance: MACITENTAN
     Dosage: 10 MG, QD
     Route: 048
     Dates: start: 20150504
  4. ADCIRCA [Concomitant]
     Active Substance: TADALAFIL
     Indication: PRODUCT USED FOR UNKNOWN INDICATION
  5. OPSUMIT [Suspect]
     Active Substance: MACITENTAN
     Indication: PULMONARY HYPERTENSION
     Dosage: 10 MG, QD
     Route: 048
  6. ADEMPAS [Suspect]
     Active Substance: RIOCIGUAT
     Dosage: 1 MG, TID
     Route: 048

REACTIONS (24)
  - Blister [Unknown]
  - Blood pressure decreased [Unknown]
  - Asthenia [Recovered/Resolved]
  - Dysarthria [Unknown]
  - Head injury [Unknown]
  - Pulmonary arterial hypertension [Unknown]
  - Cough [Unknown]
  - Headache [Unknown]
  - Oedema peripheral [Unknown]
  - Scleroderma [Unknown]
  - Dyspnoea [Unknown]
  - Vomiting [Recovered/Resolved]
  - Pain [Unknown]
  - Burning sensation [Unknown]
  - Feeling abnormal [Unknown]
  - Fall [Unknown]
  - Dysphagia [Unknown]
  - Condition aggravated [Unknown]
  - Rash [Unknown]
  - Mental impairment [Unknown]
  - Irritable bowel syndrome [Unknown]
  - Skin ulcer [Unknown]
  - Heart rate increased [Unknown]
  - Diarrhoea [Unknown]

NARRATIVE: CASE EVENT DATE: 20180924
